FAERS Safety Report 10196355 (Version 2)
Quarter: 2014Q2

REPORT INFORMATION
  Report Type: Spontaneous
  Country: US (occurrence: US)
  Receive Date: 20140527
  Receipt Date: 20140528
  Transmission Date: 20141212
  Serious: No
  Sender: FDA-Public Use
  Company Number: US-PFIZER INC-2014141913

PATIENT
  Age: 76 Year
  Sex: Male
  Weight: 85.26 kg

DRUGS (1)
  1. GABAPENTIN [Suspect]
     Indication: NEUROPATHY PERIPHERAL
     Dosage: 400 MG, 6X/DAY (SIX CAPSULES IN A DAY)
     Route: 048
     Dates: end: 201405

REACTIONS (2)
  - Hypoaesthesia [Unknown]
  - Pain in extremity [Unknown]
